FAERS Safety Report 7905941-6 (Version None)
Quarter: 2011Q4

REPORT INFORMATION
  Report Type: 
  Country: None (occurrence: None)
  Receive Date: 20111108
  Receipt Date: 20111024
  Transmission Date: 20120403
  Serious: Yes (Hospitalization)
  Sender: FDA-Public Use
  Company Number: 2011AL000073

PATIENT
  Age: 83 Year
  Sex: Male
  Weight: 80.1 kg

DRUGS (15)
  1. PANTOPRAZOLE [Concomitant]
  2. MIRALAX [Concomitant]
  3. COLACE [Concomitant]
  4. MORPHINE SULFATE [Concomitant]
  5. SENNA GLYCOSIDES, COMBINATIONS [Concomitant]
  6. PRALATREXATE [Suspect]
     Indication: DIFFUSE LARGE B-CELL LYMPHOMA
     Dosage: 30 MG/M**2;QW;IV
     Route: 042
     Dates: start: 20110726, end: 20110831
  7. BUPROPION HCL [Concomitant]
  8. DONEPEZIL HCL [Concomitant]
  9. GEL CLEAR [Concomitant]
  10. BACTRIM [Concomitant]
  11. NAMENDA [Concomitant]
  12. SYNTHROID [Concomitant]
  13. ROSUVASTATIN [Concomitant]
  14. NORVASC [Concomitant]
  15. LEUCOVORIN CALCIUM [Concomitant]

REACTIONS (5)
  - NEPHROLITHIASIS [None]
  - MENTAL DISORDER [None]
  - STOMATITIS [None]
  - BACTERIAL TEST POSITIVE [None]
  - HAEMATURIA [None]
